FAERS Safety Report 5579411-7 (Version None)
Quarter: 2008Q1

REPORT INFORMATION
  Report Type: 
  Country: None (occurrence: None)
  Receive Date: 20080102
  Receipt Date: 20071109
  Transmission Date: 20080703
  Serious: Yes (Disabling, Other)
  Sender: FDA-Public Use
  Company Number: US-PURDUE-USA_2007_0030619

PATIENT
  Sex: Male

DRUGS (1)
  1. OXYCONTIN [Suspect]
     Indication: INJURY
     Dosage: UNK MG, UNK
     Route: 048
     Dates: start: 19981015, end: 20010201

REACTIONS (5)
  - DEPRESSION [None]
  - DRUG DEPENDENCE [None]
  - LOSS OF CONSCIOUSNESS [None]
  - NERVE INJURY [None]
  - ROAD TRAFFIC ACCIDENT [None]
